FAERS Safety Report 21157892 (Version 3)
Quarter: 2022Q3

REPORT INFORMATION
  Report Type: Spontaneous
  Country: US (occurrence: US)
  Receive Date: 20220801
  Receipt Date: 20220820
  Transmission Date: 20221027
  Serious: Yes (Hospitalization, Other)
  Sender: FDA-Public Use
  Company Number: US-BRISTOL-MYERS SQUIBB COMPANY-2022-079086

PATIENT
  Age: 63 Year
  Sex: Female

DRUGS (2)
  1. REVLIMID [Suspect]
     Active Substance: LENALIDOMIDE
     Indication: Plasma cell myeloma
     Dosage: DAILY
     Route: 048
     Dates: start: 20220107
  2. REVLIMID [Suspect]
     Active Substance: LENALIDOMIDE
     Dosage: TAKE 1 CAPSULE BY MOUTH ONCE DAILY 21 DAYS ON AND 7DAYS OFF
     Route: 048
     Dates: start: 20220701

REACTIONS (8)
  - Blood pressure decreased [Unknown]
  - Asthenia [Unknown]
  - Loss of consciousness [Unknown]
  - Fall [Unknown]
  - Back injury [Unknown]
  - Chest pain [Unknown]
  - Stress [Unknown]
  - Cardiac murmur [Unknown]
